FAERS Safety Report 21763520 (Version 3)
Quarter: 2023Q1

REPORT INFORMATION
  Report Type: Report from Study
  Country: US (occurrence: US)
  Receive Date: 20221221
  Receipt Date: 20230316
  Transmission Date: 20230417
  Serious: No
  Sender: FDA-Public Use
  Company Number: US-002147023-NVSC2022US294410

PATIENT
  Sex: Female

DRUGS (1)
  1. COSENTYX [Suspect]
     Active Substance: SECUKINUMAB
     Indication: Psoriatic arthropathy
     Dosage: UNK, QMO
     Route: 058

REACTIONS (5)
  - Muscular weakness [Unknown]
  - Pain [Unknown]
  - Gait disturbance [Unknown]
  - Skin lesion [Unknown]
  - Drug ineffective [Unknown]
